FAERS Safety Report 5952509-7 (Version None)
Quarter: 2008Q4

REPORT INFORMATION
  Report Type: 
  Country: None (occurrence: None)
  Receive Date: 20081113
  Receipt Date: 20081108
  Transmission Date: 20090506
  Serious: Yes (Death, Hospitalization, Other)
  Sender: FDA-Public Use
  Company Number: DE-PFIZER INC-2008095334

PATIENT
  Sex: Female

DRUGS (1)
  1. CHAMPIX [Suspect]
     Indication: DRUG WITHDRAWAL SYNDROME
     Route: 048

REACTIONS (5)
  - ANXIETY DISORDER [None]
  - CARDIAC DISORDER [None]
  - CARDIAC FAILURE [None]
  - COUGH [None]
  - ILL-DEFINED DISORDER [None]
